FAERS Safety Report 14640609 (Version 3)
Quarter: 2018Q2

REPORT INFORMATION
  Report Type: Spontaneous
  Country: US (occurrence: US)
  Receive Date: 20180315
  Receipt Date: 20180613
  Transmission Date: 20180711
  Serious: No
  Sender: FDA-Public Use
  Company Number: US-PFIZER INC-2018105478

PATIENT
  Age: 59 Year
  Sex: Female

DRUGS (2)
  1. METHOTREXATE SODIUM. [Suspect]
     Active Substance: METHOTREXATE SODIUM
     Dosage: UNK
     Dates: start: 20140317, end: 201408
  2. METHOTREXATE SODIUM. [Suspect]
     Active Substance: METHOTREXATE SODIUM
     Dosage: 2.5 MG, WEEKLY [6 TABLETS ONE A WEEK]
     Route: 048
     Dates: start: 20140317, end: 201407

REACTIONS (3)
  - Drug effect incomplete [Unknown]
  - Nausea [Recovered/Resolved]
  - Stomatitis [Recovered/Resolved]
